FAERS Safety Report 19594825 (Version 1)
Quarter: 2021Q3

REPORT INFORMATION
  Report Type: Spontaneous
  Country: IL (occurrence: IL)
  Receive Date: 20210722
  Receipt Date: 20210722
  Transmission Date: 20211014
  Serious: Yes (Other)
  Sender: FDA-Public Use
  Company Number: IL-TEVA-2021-IL-1933548

PATIENT
  Age: 61 Year
  Sex: Female

DRUGS (4)
  1. ALBENDAZOLE. [Concomitant]
     Active Substance: ALBENDAZOLE
     Indication: TRICHINIASIS
     Route: 065
     Dates: start: 2007
  2. METHOTREXATE. [Suspect]
     Active Substance: METHOTREXATE
     Indication: EOSINOPHILIC FASCIITIS
     Route: 065
     Dates: start: 2007
  3. PREDNISONE. [Suspect]
     Active Substance: PREDNISONE
     Dosage: LOW DOSE PREDNISONE (10?20MG) UNTIL OCTOBER 2017
     Route: 065
  4. PREDNISONE. [Suspect]
     Active Substance: PREDNISONE
     Indication: EOSINOPHILIC FASCIITIS
     Dosage: 60 MILLIGRAM DAILY;
     Route: 065
     Dates: start: 2007

REACTIONS (3)
  - Hyperglycaemia [Unknown]
  - Nausea [Unknown]
  - Drug dependence [Recovered/Resolved]

NARRATIVE: CASE EVENT DATE: 2007
